FAERS Safety Report 16631789 (Version 1)
Quarter: 2019Q3

REPORT INFORMATION
  Report Type: Spontaneous
  Country: US (occurrence: US)
  Receive Date: 20190725
  Receipt Date: 20190725
  Transmission Date: 20191004
  Serious: No
  Sender: FDA-Public Use
  Company Number: US-ABBVIE-19S-163-2703473-00

PATIENT
  Sex: Female

DRUGS (3)
  1. SYNTHROID [Suspect]
     Active Substance: LEVOTHYROXINE SODIUM
     Indication: HYPOPITUITARISM
     Dosage: TAKING SINCE A MONTH TO 6 WEEKS AFTER BIRTH
     Route: 048
     Dates: start: 2017
  2. HYDROCORTISONE. [Concomitant]
     Active Substance: HYDROCORTISONE
     Indication: HYPOPITUITARISM
     Dosage: LIQUID, SHE TAKES EVERY 12 HOURS AND SHE HAS BEEN TAKING SINCE SHE WAS 3 WEEKS OLD
     Route: 048
     Dates: start: 2017
  3. GENOTROPIN [Suspect]
     Active Substance: SOMATROPIN
     Indication: HYPOPITUITARISM
     Route: 050
     Dates: start: 2017

REACTIONS (2)
  - Skin reaction [Unknown]
  - Wrong technique in product usage process [Unknown]

NARRATIVE: CASE EVENT DATE: 201810
